FAERS Safety Report 5856488-2 (Version None)
Quarter: 2008Q3

REPORT INFORMATION
  Report Type: 
  Country: None (occurrence: None)
  Receive Date: 20080825
  Receipt Date: 20080604
  Transmission Date: 20090109
  Serious: No
  Sender: FDA-Public Use
  Company Number: A0731180A

PATIENT
  Age: 10 Year
  Sex: Male

DRUGS (1)
  1. VERAMYST [Suspect]
     Dosage: 1SPR AT NIGHT
     Route: 045

REACTIONS (1)
  - EPISTAXIS [None]
